FAERS Safety Report 6198019-6 (Version None)
Quarter: 2009Q2

REPORT INFORMATION
  Report Type: 
  Country: None (occurrence: None)
  Receive Date: 20090521
  Receipt Date: 20090518
  Transmission Date: 20091009
  Serious: Yes (Death)
  Sender: FDA-Public Use
  Company Number: US-ABBOTT-09P-163-0574511-00

PATIENT
  Sex: Female

DRUGS (1)
  1. DEPAKOTE [Suspect]
     Indication: PATIENT RESTRAINT

REACTIONS (6)
  - ADVERSE REACTION [None]
  - DEHYDRATION [None]
  - DRUG DOSE OMISSION [None]
  - FAECALOMA [None]
  - HYPOPHAGIA [None]
  - URINARY TRACT INFECTION [None]
